FAERS Safety Report 10447390 (Version 2)
Quarter: 2014Q3

REPORT INFORMATION
  Report Type: Spontaneous
  Country: US (occurrence: US)
  Receive Date: 20140911
  Receipt Date: 20140911
  Transmission Date: 20150326
  Serious: No
  Sender: FDA-Public Use
  Company Number: US-BEH-2013038153

PATIENT
  Sex: Male

DRUGS (2)
  1. OTHER RESPIRATORY SYSTEM PRODUCTS [Suspect]
     Active Substance: UNSPECIFIED INGREDIENT
     Route: 055
  2. ZEMAIRA [Suspect]
     Active Substance: .ALPHA.1-PROTEINASE INHIBITOR HUMAN
     Indication: ALPHA-1 ANTI-TRYPSIN DEFICIENCY
     Dosage: LAST DOSE JUL-2013;+/-10%

REACTIONS (2)
  - Laryngitis [Unknown]
  - Dysphonia [Unknown]
